FAERS Safety Report 7807897-3 (Version None)
Quarter: 2011Q4

REPORT INFORMATION
  Report Type: 
  Country: None (occurrence: None)
  Receive Date: 20111011
  Receipt Date: 20111003
  Transmission Date: 20120403
  Serious: Yes (Hospitalization, Other)
  Sender: FDA-Public Use
  Company Number: TR-PFIZER INC-2011235597

PATIENT
  Age: 53 Year
  Sex: Male

DRUGS (3)
  1. ALPRAZOLAM [Suspect]
     Indication: ANXIETY
  2. ESCITALOPRAM OXALATE [Suspect]
     Dosage: 20 MG, A DAY
  3. ESCITALOPRAM OXALATE [Suspect]
     Indication: MAJOR DEPRESSION
     Dosage: 10 MG, A DAY

REACTIONS (3)
  - MAJOR DEPRESSION [None]
  - SUICIDAL BEHAVIOUR [None]
  - DEEP VEIN THROMBOSIS [None]
